FAERS Safety Report 4695855-X (Version None)
Quarter: 2005Q2

REPORT INFORMATION
  Report Type: 
  Country: None (occurrence: None)
  Receive Date: 20050608
  Receipt Date: 20040512
  Transmission Date: 20051028
  Serious: Yes (Other)
  Sender: FDA-Public Use
  Company Number: 367771

PATIENT
  Sex: Female
  Weight: 2.5 kg

DRUGS (2)
  1. ACCUTANE [Suspect]
     Dosage: 40 MG DAILY ORAL
     Route: 048
     Dates: start: 20031215, end: 20040402
  2. LEVAQUIN [Concomitant]

REACTIONS (2)
  - NO ADVERSE EFFECT [None]
  - NORMAL NEWBORN [None]
